FAERS Safety Report 17516708 (Version 1)
Quarter: 2020Q1

REPORT INFORMATION
  Report Type: Spontaneous
  Country: US (occurrence: US)
  Receive Date: 20200227
  Receipt Date: 20200227
  Transmission Date: 20200409
  Serious: Yes (Death)
  Sender: FDA-Public Use
  Company Number: None

PATIENT
  Age: 48 Year

DRUGS (7)
  1. FENTANYL. [Concomitant]
     Active Substance: FENTANYL
  2. OXYCODONE [Concomitant]
     Active Substance: OXYCODONE
  3. MEKINIST [Suspect]
     Active Substance: TRAMETINIB DIMETHYL SULFOXIDE
     Indication: LUNG NEOPLASM MALIGNANT
     Route: 048
     Dates: start: 20200201
  4. LEVETIRACETA [Concomitant]
  5. ELIQUIS [Concomitant]
     Active Substance: APIXABAN
  6. TAFINLAR [Suspect]
     Active Substance: DABRAFENIB MESYLATE
     Indication: LUNG NEOPLASM MALIGNANT
     Route: 048
     Dates: start: 20200128
  7. FRAGMIN [Concomitant]
     Active Substance: DALTEPARIN SODIUM

REACTIONS (1)
  - Death [None]

NARRATIVE: CASE EVENT DATE: 202002
